FAERS Safety Report 11127213 (Version 1)
Quarter: 2015Q2

REPORT INFORMATION
  Report Type: Spontaneous
  Country: US (occurrence: None)
  Receive Date: 20150520
  Receipt Date: 20150520
  Transmission Date: 20150821
  Serious: Yes (Hospitalization)
  Sender: FDA-Public Use
  Company Number: None

PATIENT
  Age: 49 Year
  Sex: Female
  Weight: 45.36 kg

DRUGS (9)
  1. BLACK COHOSH [Concomitant]
     Active Substance: BLACK COHOSH
  2. AIPRAZOLAM [Concomitant]
  3. RANIDINE [Concomitant]
  4. FERROUS SULFATE [Concomitant]
     Active Substance: FERROUS SULFATE\FERROUS SULFATE, DRIED
  5. MULTI VITA [Concomitant]
  6. CYCOBENZAPHINE [Concomitant]
  7. MELOXICAM 15MG [Suspect]
     Active Substance: MELOXICAM
     Indication: ARTHRITIS
     Dosage: 15MG, 1 A DAY, 1 A DAY, MOUTH
     Route: 048
     Dates: start: 20150303, end: 20150314
  8. TRAMADOL [Concomitant]
     Active Substance: TRAMADOL
  9. MELATONIN [Concomitant]
     Active Substance: MELATONIN

REACTIONS (4)
  - Haemorrhage [None]
  - Muscular weakness [None]
  - Dizziness [None]
  - Asthenia [None]

NARRATIVE: CASE EVENT DATE: 20150314
